FAERS Safety Report 9359758 (Version 3)
Quarter: 2013Q3

REPORT INFORMATION
  Report Type: Spontaneous
  Country: FI (occurrence: FI)
  Receive Date: 20130621
  Receipt Date: 20130729
  Transmission Date: 20140515
  Serious: Yes (Hospitalization, Other)
  Sender: FDA-Public Use
  Company Number: FI-ROCHE-1238095

PATIENT
  Sex: 0

DRUGS (1)
  1. AVASTIN [Suspect]
     Indication: MACULAR DEGENERATION
     Route: 050

REACTIONS (5)
  - Pain [Recovering/Resolving]
  - Suspected transmission of an infectious agent via product [Unknown]
  - Erythema [Recovering/Resolving]
  - Toxicity to various agents [Unknown]
  - Uveitis [Unknown]
